FAERS Safety Report 16840151 (Version 1)
Quarter: 2019Q3

REPORT INFORMATION
  Report Type: Report from Study
  Country: US (occurrence: US)
  Receive Date: 20190923
  Receipt Date: 20190923
  Transmission Date: 20191005
  Serious: Yes (Hospitalization)
  Sender: FDA-Public Use
  Company Number: US-PFIZER INC-2019394403

PATIENT
  Age: 68 Year
  Sex: Male

DRUGS (16)
  1. DEXAMETHASONE. [Suspect]
     Active Substance: DEXAMETHASONE
     Indication: ACUTE LYMPHOCYTIC LEUKAEMIA
     Dosage: REGIMEN A: 20 MG IV DAILY FOR 4 DAYS ON DAYS 1-4 AND DAYS 11-14 (APPROXIMATE).
     Route: 042
  2. RITUXIMAB. [Suspect]
     Active Substance: RITUXIMAB
     Indication: ACUTE LYMPHOCYTIC LEUKAEMIA
     Dosage: REGIMEN A: 375MG/M2 IV ON DAY 2 AND DAY 8 OF CYCLES 1 AND 3.
     Route: 042
  3. VINCRISTINE SULFATE. [Suspect]
     Active Substance: VINCRISTINE SULFATE
     Indication: ACUTE LYMPHOCYTIC LEUKAEMIA
     Dosage: REGIMEN A: 2 MG IV DAY 1 AND DAY 8 (APPROXIMATE).
     Route: 042
  4. PEGFILGRASTIM [Suspect]
     Active Substance: PEGFILGRASTIM
     Indication: ACUTE LYMPHOCYTIC LEUKAEMIA
     Dosage: REGIMEN A: 6 MG SUBQ (OR FILGRASTIM 5-10 MCG/KG DAILY) ON DAY 4
     Route: 058
  5. PEGFILGRASTIM [Suspect]
     Active Substance: PEGFILGRASTIM
     Dosage: REGIMEN B: 6 MG SUBQ (OR FILGRASTIM 5-10 MCG/KG DAILY)
     Route: 058
  6. INOTUZUMAB OZOGAMICIN [Suspect]
     Active Substance: INOTUZUMAB OZOGAMICIN
     Dosage: 0.3 MG/M2, REGIMEN B: DAYS 2 AND 8 OF CYCLES 2 AND 4 (APPROXIMATE)
     Route: 042
  7. CYCLOPHOSPHAMIDE. [Suspect]
     Active Substance: CYCLOPHOSPHAMIDE
     Indication: ACUTE LYMPHOCYTIC LEUKAEMIA
     Dosage: REGIMEN A: 150 MG/M2 IV OVER 3 HOURS TWICE A DAY ON DAYS 1-3.
     Route: 042
  8. METHOTREXATE SODIUM. [Suspect]
     Active Substance: METHOTREXATE SODIUM
     Dosage: REGIMEN B: 200 MG/M2 CONTINUOUS INFUSION OVER 22 HOURS ON DAY 1.
     Route: 042
  9. MESNA. [Suspect]
     Active Substance: MESNA
     Indication: ACUTE LYMPHOCYTIC LEUKAEMIA
     Dosage: REGIMEN A: 300 MG/M2 IV DAILY OVER 24 HOURS FOR 3 DAYS ON DAYS 1-3
     Route: 042
  10. BLINATUMOMAB [Suspect]
     Active Substance: BLINATUMOMAB
     Indication: ACUTE LYMPHOCYTIC LEUKAEMIA
     Dosage: REGIMEN C: 9 UG/DAY CONTINUOUS INFUSION DAYS 1-4 (CYCLE 5 ONLY)
     Route: 042
  11. BLINATUMOMAB [Suspect]
     Active Substance: BLINATUMOMAB
     Dosage: REGIMEN C: 28 UG/DAY CONTINUOUS INFUSION DAYS 4-29 (CYCLE 5 ONLY)
     Route: 042
  12. INOTUZUMAB OZOGAMICIN [Suspect]
     Active Substance: INOTUZUMAB OZOGAMICIN
     Indication: ACUTE LYMPHOCYTIC LEUKAEMIA
     Dosage: 0.3 MG/M2, REGIMEN A: OVER 1 HOUR ON DAYS 2 AND 8 OF CYCLES 1 AND 3 (APPROXIMATE).
     Route: 042
     Dates: start: 20170423
  13. CYTARABINE. [Suspect]
     Active Substance: CYTARABINE
     Indication: ACUTE LYMPHOCYTIC LEUKAEMIA
     Dosage: REGIMEN B: 0.5 G/M2 IV OVER 3 HOURS TWICE A DAY X 4 DOSES ON DAYS 2 AND 3.
     Route: 042
  14. METHOTREXATE SODIUM. [Suspect]
     Active Substance: METHOTREXATE SODIUM
     Indication: ACUTE LYMPHOCYTIC LEUKAEMIA
     Dosage: REGIMEN B: 50 MG/M2 IV OVER 2 HRS ON DAY1 THEN 200 MG/M2 CONTINUOUS INFUSION OVER 22 HOURS ON DAY 1.
     Route: 042
  15. RITUXIMAB. [Suspect]
     Active Substance: RITUXIMAB
     Dosage: REGIMEN B: 375 MG/M2 IV ON DAY 2 AND 8 OF CYCLES 2 AND 4.
     Route: 042
  16. BLINATUMOMAB [Suspect]
     Active Substance: BLINATUMOMAB
     Dosage: REGIMEN C: 28 UG/DAY CONTINUOUS INFUSION DAYS 1-29 (CYCLE 6, 11 AND 12)
     Route: 042

REACTIONS (1)
  - Myalgia [Recovered/Resolved]

NARRATIVE: CASE EVENT DATE: 20190814
